FAERS Safety Report 9681563 (Version 1)
Quarter: 2013Q4

REPORT INFORMATION
  Report Type: Report from Study
  Country: US (occurrence: US)
  Receive Date: 20131111
  Receipt Date: 20131111
  Transmission Date: 20140711
  Serious: Yes (Other)
  Sender: FDA-Public Use
  Company Number: US-ROCHE-1299265

PATIENT
  Sex: Male

DRUGS (1)
  1. AVASTIN [Suspect]
     Indication: DIABETIC RETINAL OEDEMA
     Dosage: OS?SUBSEQUENT DOSES ON: NOV/2012, 13/DEC/2012, 31/JAN/2013, 13/MAR/2013
     Route: 050

REACTIONS (3)
  - Cystoid macular oedema [Unknown]
  - Diabetic retinopathy [Unknown]
  - Cataract [Unknown]
